FAERS Safety Report 9655850 (Version 2)
Quarter: 2013Q4

REPORT INFORMATION
  Report Type: Spontaneous
  Country: US (occurrence: US)
  Receive Date: 20131030
  Receipt Date: 20131125
  Transmission Date: 20140711
  Serious: Yes (Life-Threatening, Hospitalization, Other)
  Sender: FDA-Public Use
  Company Number: US-009507513-1310USA012422

PATIENT
  Age: 26 Year
  Sex: Female
  Weight: 87.53 kg

DRUGS (1)
  1. NUVARING [Suspect]
     Indication: CONTRACEPTION
     Dosage: 1 DF, UNK
     Route: 067
     Dates: start: 20130801, end: 201310

REACTIONS (2)
  - Pulmonary embolism [Recovered/Resolved]
  - Ovarian cyst [Unknown]
